FAERS Safety Report 7389560-9 (Version None)
Quarter: 2011Q2

REPORT INFORMATION
  Report Type: 
  Country: None (occurrence: None)
  Receive Date: 20110401
  Receipt Date: 20110317
  Transmission Date: 20111010
  Serious: Yes (Hospitalization, Disabling, Other)
  Sender: FDA-Public Use
  Company Number: PHHY2011BE20442

PATIENT
  Age: 16 Year
  Sex: Male

DRUGS (1)
  1. RITALIN [Suspect]
     Indication: ATTENTION DEFICIT/HYPERACTIVITY DISORDER
     Dosage: UNK UKN, UNK
     Route: 048

REACTIONS (5)
  - VIITH NERVE PARALYSIS [None]
  - ATTENTION DEFICIT/HYPERACTIVITY DISORDER [None]
  - PARAPLEGIA [None]
  - HYPOKALAEMIA [None]
  - SENSATION OF HEAVINESS [None]
